FAERS Safety Report 9996447 (Version 1)
Quarter: 2014Q1

REPORT INFORMATION
  Report Type: Spontaneous
  Country: US (occurrence: None)
  Receive Date: 20140310
  Receipt Date: 20140310
  Transmission Date: 20141002
  Serious: Yes (Other)
  Sender: FDA-Public Use
  Company Number: None

PATIENT
  Age: 62 Year
  Sex: Female

DRUGS (1)
  1. RISPERIDONE [Suspect]
     Route: 048
     Dates: start: 20140304

REACTIONS (5)
  - Hypoaesthesia [None]
  - Tinnitus [None]
  - Nasal congestion [None]
  - Abnormal dreams [None]
  - Dyspnoea [None]
